FAERS Safety Report 6746728-X (Version None)
Quarter: 2010Q2

REPORT INFORMATION
  Report Type: 
  Country: None (occurrence: None)
  Receive Date: 20100528
  Receipt Date: 20090529
  Transmission Date: 20101027
  Serious: No
  Sender: FDA-Public Use
  Company Number: A0787403A

PATIENT
  Age: 80 Year
  Sex: Male

DRUGS (3)
  1. VENTOLIN [Suspect]
     Indication: CHRONIC OBSTRUCTIVE PULMONARY DISEASE
     Dosage: 2PUFF UNKNOWN
     Route: 055
     Dates: start: 20080101
  2. OXYGEN [Concomitant]
  3. LISINOPRIL [Concomitant]

REACTIONS (2)
  - DRY THROAT [None]
  - RHINORRHOEA [None]
